FAERS Safety Report 15160769 (Version 1)
Quarter: 2018Q3

REPORT INFORMATION
  Report Type: Spontaneous
  Country: US (occurrence: US)
  Receive Date: 20180718
  Receipt Date: 20180718
  Transmission Date: 20181010
  Serious: No
  Sender: FDA-Public Use
  Company Number: US-EISAI MEDICAL RESEARCH-EC-2018-042747

PATIENT
  Age: 36 Year
  Sex: Female
  Weight: 109 kg

DRUGS (1)
  1. BELVIQ [Suspect]
     Active Substance: LORCASERIN HYDROCHLORIDE
     Indication: WEIGHT DECREASED
     Route: 048
     Dates: start: 2018, end: 201807

REACTIONS (10)
  - Somnolence [Recovered/Resolved]
  - Hunger [Recovered/Resolved]
  - Breast tenderness [Recovered/Resolved]
  - Weight increased [Recovered/Resolved]
  - Peripheral swelling [Recovered/Resolved]
  - Negative thoughts [Recovered/Resolved]
  - Frustration tolerance decreased [Recovered/Resolved]
  - Impatience [Recovered/Resolved]
  - Abnormal dreams [Recovered/Resolved]
  - Menstruation delayed [Not Recovered/Not Resolved]

NARRATIVE: CASE EVENT DATE: 2018
